FAERS Safety Report 15767838 (Version 2)
Quarter: 2019Q1

REPORT INFORMATION
  Report Type: Report from Study
  Country: JP (occurrence: JP)
  Receive Date: 20181227
  Receipt Date: 20190129
  Transmission Date: 20190417
  Serious: Yes (Life-Threatening)
  Sender: FDA-Public Use
  Company Number: JP-JT-EVA201803984KERYXP-001

PATIENT
  Age: 69 Year
  Sex: Female
  Weight: 40 kg

DRUGS (13)
  1. FOSRENOL [Concomitant]
     Active Substance: LANTHANUM CARBONATE
     Indication: HYPERPHOSPHATAEMIA
     Dosage: 750 MG, QD
     Route: 048
     Dates: end: 20180119
  2. BIOFERMIN                          /01617201/ [Concomitant]
     Active Substance: BACILLUS SUBTILIS\LACTOBACILLUS ACIDOPHILUS\STREPTOCOCCUS FAECAIS
     Dosage: 3 G, QD
     Route: 048
     Dates: end: 20180119
  3. GASMOTIN [Concomitant]
     Active Substance: MOSAPRIDE CITRATE
     Dosage: 15 MG, QD
     Route: 048
     Dates: end: 20180119
  4. ARTIST [Concomitant]
     Active Substance: CARVEDILOL
     Dosage: 1.25 MG, QD
     Route: 048
     Dates: end: 20180119
  5. CALCITRIOL. [Concomitant]
     Active Substance: CALCITRIOL
     Indication: HYPERPARATHYROIDISM SECONDARY
     Dosage: 2.5 MICRO-G, QD
     Route: 042
  6. RIONA [Suspect]
     Active Substance: FERRIC CITRATE ANHYDROUS
     Indication: HYPERPHOSPHATAEMIA
     Dosage: 750 MG, QD
     Route: 048
     Dates: start: 20171213, end: 20180119
  7. KAYEXALATE [Concomitant]
     Active Substance: SODIUM POLYSTYRENE SULFONATE
     Dosage: 6.5 G, QD
     Route: 048
     Dates: end: 20180119
  8. OMEPRAL                            /00661201/ [Concomitant]
     Active Substance: OMEPRAZOLE
     Indication: HYPERCHLORHYDRIA
     Dosage: 40 MG, QD
     Route: 065
     Dates: start: 20180119, end: 20180127
  9. CALTAN [Concomitant]
     Active Substance: CALCIUM CARBONATE
     Indication: HYPERPHOSPHATAEMIA
     Dosage: 1500 MG, QD
     Route: 048
     Dates: end: 20180119
  10. EPOETIN ALFA [Concomitant]
     Active Substance: ERYTHROPOIETIN
     Indication: NEPHROGENIC ANAEMIA
     Dosage: 1500 IU, 40 DOSES IN 3 MONTHS
     Route: 042
  11. CINACALCET HYDROCHLORIDE. [Concomitant]
     Active Substance: CINACALCET HYDROCHLORIDE
     Indication: HYPERPARATHYROIDISM SECONDARY
     Dosage: 75 MG, QD
     Route: 048
     Dates: end: 20180119
  12. ALLEGRA [Concomitant]
     Active Substance: FEXOFENADINE HYDROCHLORIDE
     Dosage: 120 MG, QD
     Route: 048
     Dates: end: 20180119
  13. PARIET [Concomitant]
     Active Substance: RABEPRAZOLE SODIUM
     Indication: HYPERCHLORHYDRIA
     Dosage: 10 MG, QD
     Route: 048
     Dates: end: 20180119

REACTIONS (1)
  - Pancreatitis [Recovered/Resolved]

NARRATIVE: CASE EVENT DATE: 20180119
